FAERS Safety Report 6284813-X (Version None)
Quarter: 2009Q3

REPORT INFORMATION
  Report Type: 
  Country: None (occurrence: None)
  Receive Date: 20090727
  Receipt Date: 20090720
  Transmission Date: 20100115
  Serious: No
  Sender: FDA-Public Use
  Company Number: US-EISAI INC.-E2080-00185-SPO-US

PATIENT
  Age: 14 Year
  Sex: Female
  Weight: 54 kg

DRUGS (11)
  1. BANZEL [Suspect]
     Indication: EPILEPSY
     Route: 048
     Dates: start: 20090416, end: 20090429
  2. BANZEL [Suspect]
     Route: 048
     Dates: start: 20090430, end: 20090502
  3. BANZEL [Suspect]
     Route: 048
     Dates: start: 20090503, end: 20090501
  4. BANZEL [Suspect]
     Route: 048
     Dates: start: 20090501, end: 20090517
  5. BANZEL [Suspect]
     Route: 048
     Dates: start: 20090518, end: 20090531
  6. BANZEL [Suspect]
     Route: 048
     Dates: start: 20090601, end: 20090623
  7. BANZEL [Suspect]
     Route: 048
     Dates: start: 20090624, end: 20090705
  8. BANZEL [Suspect]
     Route: 048
     Dates: start: 20090706
  9. KEPPRA [Concomitant]
     Route: 048
     Dates: start: 20080101
  10. VALPROIC ACID [Concomitant]
     Route: 048
     Dates: start: 20080101
  11. CLOBAZAM [Concomitant]
     Route: 048
     Dates: start: 20080101

REACTIONS (2)
  - CONVULSION [None]
  - SOMNOLENCE [None]
